FAERS Safety Report 21482482 (Version 1)
Quarter: 2022Q4

REPORT INFORMATION
  Report Type: Spontaneous
  Country: US (occurrence: US)
  Receive Date: 20221020
  Receipt Date: 20221020
  Transmission Date: 20230113
  Serious: No
  Sender: FDA-Public Use
  Company Number: US-GSKCCFUS-Case-01530115_AE-86724

PATIENT
  Sex: Male

DRUGS (1)
  1. NUCALA [Suspect]
     Active Substance: MEPOLIZUMAB
     Indication: Nasal polyps
     Dosage: 100 MG/ML, Z, EVERY 28 DAYS
     Route: 058
     Dates: start: 2022

REACTIONS (5)
  - Hepatic steatosis [Unknown]
  - Condition aggravated [Unknown]
  - Nasal congestion [Unknown]
  - Wrong technique in device usage process [Unknown]
  - Drug ineffective [Unknown]
